FAERS Safety Report 13107304 (Version 1)
Quarter: 2017Q1

REPORT INFORMATION
  Report Type: Spontaneous
  Country: HR (occurrence: HR)
  Receive Date: 20170112
  Receipt Date: 20170112
  Transmission Date: 20170428
  Serious: Yes (Other)
  Sender: FDA-Public Use
  Company Number: HR-ROCHE-1877437

PATIENT
  Age: 17 Year
  Sex: Female

DRUGS (4)
  1. LOQUEN [Suspect]
     Active Substance: QUETIAPINE FUMARATE
     Indication: PRODUCT USED FOR UNKNOWN INDICATION
     Dosage: REPORTED AS LOQUEN
     Route: 048
     Dates: start: 2016, end: 2016
  2. RIVOTRIL [Suspect]
     Active Substance: CLONAZEPAM
     Indication: PRODUCT USED FOR UNKNOWN INDICATION
     Route: 048
     Dates: start: 2016, end: 2016
  3. LAMICTAL [Suspect]
     Active Substance: LAMOTRIGINE
     Indication: PRODUCT USED FOR UNKNOWN INDICATION
     Route: 048
     Dates: start: 2016, end: 2016
  4. ZOLOFT [Suspect]
     Active Substance: SERTRALINE HYDROCHLORIDE
     Indication: PRODUCT USED FOR UNKNOWN INDICATION
     Route: 048
     Dates: start: 2016, end: 2016

REACTIONS (4)
  - Asthenia [Unknown]
  - Coma [Unknown]
  - Suicide attempt [Unknown]
  - Loss of consciousness [Unknown]

NARRATIVE: CASE EVENT DATE: 2016
